FAERS Safety Report 16843933 (Version 1)
Quarter: 2019Q3

REPORT INFORMATION
  Report Type: Spontaneous
  Country: US (occurrence: US)
  Receive Date: 20190802
  Receipt Date: 20190802
  Transmission Date: 20191005
  Serious: No
  Sender: FDA-Public Use
  Company Number: None

PATIENT
  Age: 81 Year
  Sex: Female

DRUGS (1)
  1. IBRANCE [Suspect]
     Active Substance: PALBOCICLIB
     Route: 048
     Dates: start: 201905

REACTIONS (6)
  - White blood cell count decreased [None]
  - Dry mouth [None]
  - Urine odour abnormal [None]
  - Dry skin [None]
  - Taste disorder [None]
  - Chills [None]

NARRATIVE: CASE EVENT DATE: 20190802
